FAERS Safety Report 23047736 (Version 1)
Quarter: 2023Q4

REPORT INFORMATION
  Report Type: Spontaneous
  Country: CN (occurrence: None)
  Receive Date: 20231010
  Receipt Date: 20231010
  Transmission Date: 20240110
  Serious: Yes (Hospitalization)
  Sender: FDA-Public Use
  Company Number: CN-ROCHE-3435449

PATIENT
  Age: 74 Year
  Sex: Female
  Weight: 50 kg

DRUGS (5)
  1. MABTHERA [Suspect]
     Active Substance: RITUXIMAB
     Indication: Lymphoma
     Dosage: CYCLE1-CYCLE7, CYCLE8
     Route: 041
  2. CYCLOPHOSPHAMIDE [Suspect]
     Active Substance: CYCLOPHOSPHAMIDE
     Indication: Lymphoma
     Dosage: CYCLE8
     Route: 041
  3. EPIRUBICIN [Suspect]
     Active Substance: EPIRUBICIN
     Indication: Lymphoma
     Dosage: CYCLE8
     Route: 041
  4. VINCRISTINE SULFATE [Concomitant]
     Active Substance: VINCRISTINE SULFATE
     Indication: Lymphoma
     Dosage: LOT NUMBER VCR1230102, CYCLE8
     Route: 042
  5. PREDNISOLONE [Concomitant]
     Active Substance: PREDNISOLONE
     Indication: Lymphoma
     Dosage: CYCLE1-CYCLE7, CYCLE8

REACTIONS (1)
  - Myelosuppression [Recovering/Resolving]

NARRATIVE: CASE EVENT DATE: 20230902
